FAERS Safety Report 5768224-9 (Version None)
Quarter: 2008Q2

REPORT INFORMATION
  Report Type: 
  Country: None (occurrence: None)
  Receive Date: 20080612
  Receipt Date: 20080606
  Transmission Date: 20081010
  Serious: Yes (Hospitalization, Other)
  Sender: FDA-Public Use
  Company Number: GB-MERCK-0806GBR00031

PATIENT
  Age: 42 Year
  Sex: Male
  Weight: 66 kg

DRUGS (10)
  1. VYTORIN [Suspect]
     Indication: CORONARY ARTERY DISEASE
     Route: 065
  2. VYTORIN [Suspect]
     Indication: HYPERLIPIDAEMIA
     Route: 065
  3. ABACAVIR SULFATE [Concomitant]
     Route: 065
  4. ASPIRIN [Concomitant]
     Route: 065
  5. BISOPROLOL [Concomitant]
     Route: 065
  6. INDINAVIR [Concomitant]
     Route: 065
  7. LAMIVUDINE [Concomitant]
     Route: 065
  8. PERINDOPRIL [Concomitant]
     Route: 065
  9. PRAVASTATIN SODIUM [Concomitant]
     Route: 065
  10. RITONAVIR [Concomitant]
     Route: 065

REACTIONS (4)
  - ASTHENIA [None]
  - MYALGIA [None]
  - RHABDOMYOLYSIS [None]
  - URINE COLOUR ABNORMAL [None]
